FAERS Safety Report 7562821-6 (Version None)
Quarter: 2011Q2

REPORT INFORMATION
  Report Type: 
  Country: None (occurrence: None)
  Receive Date: 20110525
  Receipt Date: 20110412
  Transmission Date: 20111010
  Serious: No
  Sender: FDA-Public Use
  Company Number: 327078

PATIENT
  Age: 64 Year
  Sex: Male

DRUGS (9)
  1. KLOR-CON [Concomitant]
  2. DILTIAZ (DILTIAZEM HYDROCHLORIDE) [Concomitant]
  3. LOVAZA [Concomitant]
  4. DETROL LA [Concomitant]
  5. AVALIDE [Concomitant]
  6. VICTOZA [Suspect]
     Indication: TYPE 2 DIABETES MELLITUS
     Dosage: 0.6 U, 1.8 U, 1.2 U, QD, SUBCUTANEOUS
     Route: 058
     Dates: start: 20110310
  7. FINASTERIDE [Concomitant]
  8. TRICOR (ADENOSINE) [Concomitant]
  9. SIMVASTATIN [Concomitant]

REACTIONS (5)
  - INJECTION SITE PAIN [None]
  - SALIVARY HYPERSECRETION [None]
  - INJECTION SITE HAEMATOMA [None]
  - FLATULENCE [None]
  - DYSGEUSIA [None]
